FAERS Safety Report 23720870 (Version 1)
Quarter: 2024Q2

REPORT INFORMATION
  Report Type: Spontaneous
  Country: CN (occurrence: CN)
  Receive Date: 20240409
  Receipt Date: 20240409
  Transmission Date: 20240716
  Serious: Yes (Other)
  Sender: FDA-Public Use
  Company Number: CN-HALEON-CNCH2024APC015071

PATIENT

DRUGS (1)
  1. SENSODYNE [Suspect]
     Active Substance: POTASSIUM NITRATE\SODIUM FLUORIDE
     Indication: Hyperaesthesia teeth
     Dosage: UNK

REACTIONS (5)
  - Hyperpyrexia [Unknown]
  - Gingival pain [Unknown]
  - Gingival swelling [Unknown]
  - Feeding disorder [Unknown]
  - Noninfective gingivitis [Unknown]
